APPROVED DRUG PRODUCT: CALAN
Active Ingredient: VERAPAMIL HYDROCHLORIDE
Strength: 80MG **Federal Register determination that product was not discontinued or withdrawn for safety or effectiveness reasons**
Dosage Form/Route: TABLET;ORAL
Application: N018817 | Product #001
Applicant: PFIZER INC
Approved: Sep 10, 1984 | RLD: Yes | RS: No | Type: DISCN